FAERS Safety Report 24300471 (Version 2)
Quarter: 2024Q3

REPORT INFORMATION
  Report Type: Spontaneous
  Country: US (occurrence: US)
  Receive Date: 20240910
  Receipt Date: 20240916
  Transmission Date: 20241017
  Serious: No
  Sender: ABBVIE
  Company Number: US-ABBVIE-5909557

PATIENT
  Sex: Female

DRUGS (1)
  1. BOTOX [Suspect]
     Active Substance: ONABOTULINUMTOXINA
     Indication: Hypertonic bladder
     Dosage: TIME INTERVAL: AS NECESSARY
     Route: 043

REACTIONS (5)
  - Pain [Unknown]
  - Urinary tract discomfort [Unknown]
  - Dysuria [Unknown]
  - Pollakiuria [Unknown]
  - Urinary tract infection [Unknown]
